FAERS Safety Report 8234559-3 (Version None)
Quarter: 2012Q1

REPORT INFORMATION
  Report Type: 
  Country: None (occurrence: None)
  Receive Date: 20120326
  Receipt Date: 20120312
  Transmission Date: 20120608
  Serious: Yes (Hospitalization)
  Sender: FDA-Public Use
  Company Number: US-ROCHE-641381

PATIENT
  Sex: Female

DRUGS (14)
  1. PRILOSEC [Concomitant]
  2. LISINOPRIL [Concomitant]
  3. VITAMIN D [Concomitant]
  4. MYCOPHENOLATE MOFETIL (CELLCEPT) [Suspect]
     Route: 048
  5. FISH OIL [Concomitant]
  6. BELATACEPT [Suspect]
     Indication: RENAL TRANSPLANT
     Route: 042
  7. CALCIUM CARBONATE [Concomitant]
  8. MYCOPHENOLATE MOFETIL (CELLCEPT) [Suspect]
     Indication: PROPHYLAXIS AGAINST TRANSPLANT REJECTION
     Route: 048
     Dates: start: 20090409, end: 20090519
  9. PREDNISONE TAB [Suspect]
     Indication: RENAL TRANSPLANT
     Dosage: DOSING FREQUENCY: 1 DAY
     Route: 048
  10. RAPAMUNE [Concomitant]
     Dosage: DOSE DECREASED
  11. PREDNISONE TAB [Suspect]
     Route: 048
  12. ESTRADIOL [Concomitant]
  13. RAPAMUNE [Concomitant]
     Dates: start: 20090519, end: 20090520
  14. FOSAMAX PLUS D [Concomitant]

REACTIONS (6)
  - DIARRHOEA [None]
  - ABDOMINAL COMPARTMENT SYNDROME [None]
  - SMALL INTESTINAL OBSTRUCTION [None]
  - VOLVULUS [None]
  - PNEUMATOSIS [None]
  - URINARY TRACT INFECTION [None]
